FAERS Safety Report 10086850 (Version 1)
Quarter: 2014Q2

REPORT INFORMATION
  Report Type: Spontaneous
  Country: GB (occurrence: GB)
  Receive Date: 20140418
  Receipt Date: 20140418
  Transmission Date: 20141212
  Serious: Yes (Disabling)
  Sender: FDA-Public Use
  Company Number: GB-ALLERGAN-1407682US

PATIENT
  Sex: Female

DRUGS (1)
  1. BOTOX [Suspect]
     Indication: PRODUCT USED FOR UNKNOWN INDICATION
     Dosage: UNK, SINGLE

REACTIONS (3)
  - Swelling [Not Recovered/Not Resolved]
  - Impaired work ability [Unknown]
  - Calcinosis [Not Recovered/Not Resolved]
